FAERS Safety Report 12107231 (Version 1)
Quarter: 2016Q1

REPORT INFORMATION
  Report Type: Spontaneous
  Country: KR (occurrence: KR)
  Receive Date: 20160223
  Receipt Date: 20160223
  Transmission Date: 20160526
  Serious: Yes (Hospitalization)
  Sender: FDA-Public Use
  Company Number: KR-AMGEN-KORCT2016021965

PATIENT
  Age: 59 Year
  Sex: Female
  Weight: 70.4 kg

DRUGS (25)
  1. G-LASTA [Suspect]
     Active Substance: PEGFILGRASTIM
     Indication: FEBRILE NEUTROPENIA
     Dosage: 6 MG, 1X/3WEEKS
     Route: 058
     Dates: start: 20151206, end: 20151206
  2. DOXORUBICIN [Concomitant]
     Active Substance: DOXORUBICIN
     Indication: BREAST CANCER
     Dosage: 88 MG, UNK
     Route: 042
     Dates: start: 20151205, end: 20151205
  3. DOXORUBICIN [Concomitant]
     Active Substance: DOXORUBICIN
     Dosage: 88 MG, UNK
     Route: 042
     Dates: start: 20160206, end: 20160206
  4. FILGRASTIM [Concomitant]
     Active Substance: FILGRASTIM
     Dosage: 150 MUG, UNK
     Route: 058
     Dates: start: 20151231, end: 20160102
  5. DOXORUBICIN [Concomitant]
     Active Substance: DOXORUBICIN
     Dosage: 88 MG, UNK
     Route: 042
     Dates: start: 20151226, end: 20151226
  6. CYCLOPHOSPHAMIDE. [Concomitant]
     Active Substance: CYCLOPHOSPHAMIDE
     Dosage: 880 MG, UNK
     Route: 042
     Dates: start: 20151226, end: 20151226
  7. CEFOBACTAM [Concomitant]
     Active Substance: CEFOPERAZONE SODIUM\SULBACTAM SODIUM
     Dosage: 2 G, UNK
     Route: 042
     Dates: start: 20160122, end: 20160123
  8. TOBRAMYCIN. [Concomitant]
     Active Substance: TOBRAMYCIN
     Dosage: 200 MG, UNK
     Route: 042
     Dates: start: 20151231, end: 20160102
  9. G-LASTA [Suspect]
     Active Substance: PEGFILGRASTIM
     Dosage: 6 MG, 1X/3WEEKS
     Route: 058
     Dates: start: 20151227, end: 20151227
  10. G-LASTA [Suspect]
     Active Substance: PEGFILGRASTIM
     Dosage: 6 MG, 1X/3WEEKS
     Route: 058
     Dates: start: 20160207, end: 20160207
  11. DOCETAXEL. [Concomitant]
     Active Substance: DOCETAXEL
     Dosage: 132 MG, UNK
     Route: 042
     Dates: start: 20160206, end: 20160206
  12. CYCLOPHOSPHAMIDE. [Concomitant]
     Active Substance: CYCLOPHOSPHAMIDE
     Indication: BREAST CANCER
     Dosage: 880 MG, UNK
     Route: 042
     Dates: start: 20151205, end: 20151205
  13. CEFOBACTAM [Concomitant]
     Active Substance: CEFOPERAZONE SODIUM\SULBACTAM SODIUM
     Dosage: 2 G, UNK
     Route: 042
     Dates: start: 20151211, end: 20151212
  14. FILGRASTIM [Concomitant]
     Active Substance: FILGRASTIM
     Dosage: 150 MUG, UNK
     Route: 058
     Dates: start: 20151211, end: 20151212
  15. DOCETAXEL. [Concomitant]
     Active Substance: DOCETAXEL
     Dosage: 132 MG, UNK
     Route: 042
     Dates: start: 20151226, end: 20151226
  16. CEFOBACTAM [Concomitant]
     Active Substance: CEFOPERAZONE SODIUM\SULBACTAM SODIUM
     Dosage: 2 G, UNK
     Route: 042
     Dates: start: 20151231, end: 20160102
  17. TOBRAMYCIN. [Concomitant]
     Active Substance: TOBRAMYCIN
     Dosage: 200 MG, UNK
     Route: 042
     Dates: start: 20151211, end: 20151212
  18. G-LASTA [Suspect]
     Active Substance: PEGFILGRASTIM
     Dosage: 6 MG, 1X/3WEEKS
     Route: 058
     Dates: start: 20160117, end: 20160117
  19. DOCETAXEL. [Concomitant]
     Active Substance: DOCETAXEL
     Indication: BREAST CANCER
     Dosage: 132 MG, UNK
     Route: 042
     Dates: start: 20151205, end: 20151205
  20. DOCETAXEL. [Concomitant]
     Active Substance: DOCETAXEL
     Dosage: 132 MG, UNK
     Route: 042
     Dates: start: 20160116, end: 20160116
  21. CYCLOPHOSPHAMIDE. [Concomitant]
     Active Substance: CYCLOPHOSPHAMIDE
     Dosage: 880 MG, UNK
     Route: 042
     Dates: start: 20160116, end: 20160116
  22. FILGRASTIM [Concomitant]
     Active Substance: FILGRASTIM
     Dosage: 150 MUG, UNK
     Route: 058
     Dates: start: 20160122, end: 20160123
  23. TOBRAMYCIN. [Concomitant]
     Active Substance: TOBRAMYCIN
     Dosage: 200 MG, UNK
     Route: 042
     Dates: start: 20160122, end: 20160123
  24. DOXORUBICIN [Concomitant]
     Active Substance: DOXORUBICIN
     Dosage: 88 MG, UNK
     Route: 042
     Dates: start: 20160116, end: 20160116
  25. CYCLOPHOSPHAMIDE. [Concomitant]
     Active Substance: CYCLOPHOSPHAMIDE
     Dosage: 880 MG, UNK
     Route: 042
     Dates: start: 20160206, end: 20160206

REACTIONS (1)
  - Neutropenia [Recovered/Resolved]

NARRATIVE: CASE EVENT DATE: 20160212
